FAERS Safety Report 8563509-5 (Version None)
Quarter: 2012Q3

REPORT INFORMATION
  Report Type: 
  Country: None (occurrence: None)
  Receive Date: 20120802
  Receipt Date: 20120723
  Transmission Date: 20120928
  Serious: Yes (Hospitalization, Other)
  Sender: FDA-Public Use
  Company Number: US-009507513-1207USA011469

PATIENT

DRUGS (6)
  1. ZOCOR [Suspect]
     Route: 048
  2. MARCUMAR [Suspect]
  3. SPIRONOLACTONE [Suspect]
  4. [COMPOSITION UNSPECIFIED] [Concomitant]
     Route: 047
  5. DILTIAZEM HCL [Suspect]
  6. METHOTREXATE [Suspect]
     Dosage: UNK
     Route: 048

REACTIONS (7)
  - DEHYDRATION [None]
  - TOXICITY TO VARIOUS AGENTS [None]
  - CHROMATURIA [None]
  - LEUKOPENIA [None]
  - ANAL HAEMORRHAGE [None]
  - MUCOSAL INFLAMMATION [None]
  - RENAL FAILURE [None]
